FAERS Safety Report 22217692 (Version 1)
Quarter: 2023Q2

REPORT INFORMATION
  Report Type: Spontaneous
  Country: GB (occurrence: GB)
  Receive Date: 20230417
  Receipt Date: 20230417
  Transmission Date: 20230721
  Serious: Yes (Other)
  Sender: FDA-Public Use
  Company Number: None

PATIENT
  Age: 74 Year
  Sex: Male
  Weight: 77 kg

DRUGS (5)
  1. APIXABAN [Suspect]
     Active Substance: APIXABAN
     Indication: Product used for unknown indication
     Dates: start: 20220830
  2. APIXABAN [Concomitant]
     Active Substance: APIXABAN
     Dosage: TAKE ONE TABLET TWICE DAILY TO HELP PREVENT BLO..
     Dates: start: 20211215, end: 20220830
  3. BISOPROLOL [Concomitant]
     Active Substance: BISOPROLOL
     Dosage: 1 TABLET ONCE DAILY
     Dates: start: 20211215, end: 20220824
  4. EDOXABAN [Concomitant]
     Active Substance: EDOXABAN
     Dosage: TAKE ONE TABLET EACH DAY TO HELP PREVENT BLOOD
     Dates: start: 20220830
  5. MOMETASONE [Concomitant]
     Active Substance: MOMETASONE
     Dosage: APPLY THINLY DAILY
     Dates: start: 20220830

REACTIONS (2)
  - Vasculitic rash [Unknown]
  - Vasculitis [Unknown]

NARRATIVE: CASE EVENT DATE: 20220830
